FAERS Safety Report 11076307 (Version 1)
Quarter: 2015Q2

REPORT INFORMATION
  Report Type: Spontaneous
  Country: CH (occurrence: CH)
  Receive Date: 20150429
  Receipt Date: 20150429
  Transmission Date: 20150821
  Serious: Yes (Other)
  Sender: FDA-Public Use
  Company Number: CH-ASTRAZENECA-2015SE25417

PATIENT
  Age: 34 Year
  Sex: Male
  Weight: 85 kg

DRUGS (20)
  1. DAFALGAN [Concomitant]
     Active Substance: ACETAMINOPHEN
     Dosage: 1-2 G
  2. CENTRUM [Concomitant]
     Active Substance: VITAMINS
  3. SEROQUEL [Interacting]
     Active Substance: QUETIAPINE FUMARATE
     Indication: PSYCHOTIC DISORDER
     Route: 048
  4. TEMESTA [Concomitant]
     Active Substance: LORAZEPAM
     Indication: INSOMNIA
     Dosage: 1MG TEMESTA WITH EACH SEQUASE, 2.5MG FOR SEVERE PANIC AND 2.5MG FOR SLEEPING
  5. MAGNESIUM [Concomitant]
     Active Substance: MAGNESIUM
  6. BUSCOPAN [Concomitant]
     Active Substance: BUTYLSCOPOLAMINE BROMIDE
     Dosage: SEVERAL DOSES
  7. TRAMAL DROPS [Concomitant]
     Dosage: 500 MG COMBINED WITH 30 MG CODEINE
  8. COLLUSONOL [Concomitant]
  9. STILNOX [Concomitant]
     Active Substance: ZOLPIDEM TARTRATE
  10. SIRDALUD [Concomitant]
     Active Substance: TIZANIDINE
     Dosage: 1-2X /4 MG
  11. LUTEIN [Concomitant]
     Active Substance: LUTEIN
  12. SEROQUEL [Interacting]
     Active Substance: QUETIAPINE FUMARATE
     Indication: SUICIDAL IDEATION
     Route: 048
  13. RITALIN [Suspect]
     Active Substance: METHYLPHENIDATE HYDROCHLORIDE
     Route: 065
  14. KREON [Concomitant]
     Active Substance: PANCRELIPASE
     Dosage: 1000
  15. VITAMIN D3 [Concomitant]
     Active Substance: CHOLECALCIFEROL
  16. FERRITIN [Concomitant]
     Active Substance: FERRITIN
  17. ESCITALOPRAM [Interacting]
     Active Substance: ESCITALOPRAM OXALATE
     Route: 065
  18. VITAMIN B12 [Concomitant]
     Active Substance: CYANOCOBALAMIN
  19. TEMESTA [Concomitant]
     Active Substance: LORAZEPAM
     Indication: PANIC REACTION
     Dosage: 1MG TEMESTA WITH EACH SEQUASE, 2.5MG FOR SEVERE PANIC AND 2.5MG FOR SLEEPING
  20. CALCIMAGON [Concomitant]
     Active Substance: CALCIUM

REACTIONS (8)
  - Drug interaction [Unknown]
  - Suicide attempt [Unknown]
  - Aggression [Unknown]
  - Attention deficit/hyperactivity disorder [Unknown]
  - Rash [Unknown]
  - Weight decreased [Unknown]
  - Drug abuse [Unknown]
  - Depression [Unknown]

NARRATIVE: CASE EVENT DATE: 2007
